FAERS Safety Report 9514165 (Version 1)
Quarter: 2013Q3

REPORT INFORMATION
  Report Type: Spontaneous
  Country: US (occurrence: US)
  Receive Date: 20130910
  Receipt Date: 20130910
  Transmission Date: 20140515
  Serious: No
  Sender: FDA-Public Use
  Company Number: US-SANOFI-AVENTIS-2013SA076578

PATIENT
  Sex: Male

DRUGS (1)
  1. AVAPRO [Suspect]
     Indication: BLOOD PRESSURE MANAGEMENT
     Route: 065

REACTIONS (2)
  - Drug ineffective [Unknown]
  - Medication error [Unknown]
